FAERS Safety Report 7183571-4 (Version None)
Quarter: 2010Q4

REPORT INFORMATION
  Report Type: 
  Country: None (occurrence: None)
  Receive Date: 20101220
  Receipt Date: 20101220
  Transmission Date: 20110411
  Serious: Yes (Hospitalization)
  Sender: FDA-Public Use
  Company Number: None

PATIENT
  Age: 78 Year
  Sex: Female
  Weight: 63.6 kg

DRUGS (17)
  1. COUMADIN [Suspect]
     Indication: ATRIAL FIBRILLATION
     Dosage: 5 MG MWF PO  CHRONIC   4MG TTHSS
     Route: 048
  2. ZOCOR [Concomitant]
  3. SOTALOL [Concomitant]
  4. ALLEGRA [Concomitant]
  5. METFORMIN HCL [Concomitant]
  6. M.V.I. [Concomitant]
  7. FIBER ONE [Concomitant]
  8. LASIX [Concomitant]
  9. NASONEX [Concomitant]
  10. FIORICET [Concomitant]
  11. PRILOSEC [Concomitant]
  12. SYNTHROID [Concomitant]
  13. NEURONTIN [Concomitant]
  14. VIT D [Concomitant]
  15. TYLENOL (CAPLET) [Concomitant]
  16. VICKS [Concomitant]
  17. EMERGEN C [Concomitant]

REACTIONS (2)
  - INTERNATIONAL NORMALISED RATIO INCREASED [None]
  - SUBDURAL HAEMORRHAGE [None]
